FAERS Safety Report 12983385 (Version 3)
Quarter: 2017Q4

REPORT INFORMATION
  Report Type: Spontaneous
  Country: CA (occurrence: CA)
  Receive Date: 20161129
  Receipt Date: 20171102
  Transmission Date: 20180320
  Serious: Yes (Hospitalization, Other)
  Sender: FDA-Public Use
  Company Number: CA-APOTEX-2016AP015094

PATIENT
  Age: 20 Year
  Sex: Female

DRUGS (13)
  1. METHYLERGOMETRINE MALEATE [Concomitant]
     Active Substance: METHYLERGONOVINE MALEATE
     Indication: PRODUCT USED FOR UNKNOWN INDICATION
     Route: 065
  2. CELECOXIB. [Concomitant]
     Active Substance: CELECOXIB
     Indication: PRODUCT USED FOR UNKNOWN INDICATION
     Dosage: UNK
     Route: 065
  3. TIOTROPIUM [Concomitant]
     Active Substance: TIOTROPIUM
     Indication: ASTHMA
     Route: 055
  4. APO-IBUPROFEN [Suspect]
     Active Substance: IBUPROFEN
     Indication: HEADACHE
     Dosage: UNK
     Route: 065
  5. ACETAMINOPHEN CAPLETS 325 MG [Suspect]
     Active Substance: ACETAMINOPHEN
     Indication: PRODUCT USED FOR UNKNOWN INDICATION
     Dosage: UNK
     Route: 048
  6. FLUTICASONE W/SALMETEROL [Concomitant]
     Active Substance: FLUTICASONE PROPIONATE\SALMETEROL XINAFOATE
     Indication: ASTHMA
     Route: 055
  7. ADVAIR HFA [Concomitant]
     Active Substance: FLUTICASONE PROPIONATE\SALMETEROL XINAFOATE
     Indication: PRODUCT USED FOR UNKNOWN INDICATION
     Route: 065
  8. FLUTICASONE. [Concomitant]
     Active Substance: FLUTICASONE
     Indication: ASTHMA
     Route: 065
  9. APO-CELECOXIB [Suspect]
     Active Substance: CELECOXIB
     Indication: PRODUCT USED FOR UNKNOWN INDICATION
     Dosage: UNK
     Route: 065
  10. SALBUTAMOL [Concomitant]
     Active Substance: ALBUTEROL
     Indication: ASTHMA
     Route: 055
  11. SPIRIVA [Concomitant]
     Active Substance: TIOTROPIUM BROMIDE MONOHYDRATE
     Indication: PRODUCT USED FOR UNKNOWN INDICATION
     Route: 065
  12. SALMETEROL [Concomitant]
     Active Substance: SALMETEROL
     Indication: ASTHMA
     Route: 065
  13. TIOTROPIUM BROMIDE [Concomitant]
     Active Substance: TIOTROPIUM BROMIDE
     Indication: ASTHMA
     Route: 045

REACTIONS (12)
  - Pulseless electrical activity [Unknown]
  - Dyspnoea [Unknown]
  - Aspirin-exacerbated respiratory disease [Recovered/Resolved]
  - Chest discomfort [Unknown]
  - Kounis syndrome [Recovered/Resolved]
  - Generalised tonic-clonic seizure [Unknown]
  - Ischaemia [Unknown]
  - Troponin increased [Unknown]
  - Cardiac arrest [Unknown]
  - Electrocardiogram T wave inversion [Unknown]
  - Loss of consciousness [Unknown]
  - Sinus bradycardia [Unknown]
